FAERS Safety Report 5614115-3 (Version None)
Quarter: 2008Q1

REPORT INFORMATION
  Report Type: 
  Country: None (occurrence: None)
  Receive Date: 20080205
  Receipt Date: 20080125
  Transmission Date: 20080703
  Serious: Yes (Other)
  Sender: FDA-Public Use
  Company Number: US-WYE-H02322108

PATIENT
  Sex: Male

DRUGS (1)
  1. ROBITUSSIN COUGH LONG ACTING [Suspect]
     Dosage: UNKNOWN
     Route: 065

REACTIONS (3)
  - DRUG ABUSE [None]
  - OVERDOSE [None]
  - ROAD TRAFFIC ACCIDENT [None]
